FAERS Safety Report 19873179 (Version 2)
Quarter: 2021Q4

REPORT INFORMATION
  Report Type: Spontaneous
  Country: US (occurrence: US)
  Receive Date: 20210923
  Receipt Date: 20211013
  Transmission Date: 20220303
  Serious: No
  Sender: FDA-Public Use
  Company Number: US-JNJFOC-20210917236

PATIENT
  Sex: Female

DRUGS (1)
  1. WOMENS ROGAINE UNSCENTED [Suspect]
     Active Substance: MINOXIDIL
     Indication: Alopecia
     Dosage: DOSE: ABOUT HALF CAP OF FOAM
     Route: 061

REACTIONS (5)
  - Alopecia [Unknown]
  - Application site dryness [Unknown]
  - Drug hypersensitivity [Unknown]
  - Application site irritation [Recovered/Resolved]
  - Drug ineffective [Unknown]
